FAERS Safety Report 8925939 (Version 1)
Quarter: 2012Q4

REPORT INFORMATION
  Report Type: 
  Country: US (occurrence: US)
  Receive Date: 20121126
  Receipt Date: 20121126
  Transmission Date: 20130627
  Serious: Yes (Life-Threatening, Hospitalization)
  Sender: FDA-Public Use
  Company Number: US-009507513-1103USA00984

PATIENT
  Age: 79 None
  Sex: Male
  Weight: 77.11 kg

DRUGS (33)
  1. VORINOSTAT [Suspect]
     Indication: GLIOBLASTOMA MULTIFORME
     Dosage: one week on,one week off
     Route: 048
     Dates: start: 20110201, end: 20110203
  2. VORINOSTAT [Suspect]
     Indication: MALIGNANT GLIOMA
     Dosage: one week on,one week off
     Route: 048
     Dates: start: 20110210, end: 20110216
  3. VORINOSTAT [Suspect]
     Dosage: 200 mg, UNK
     Route: 048
  4. VORINOSTAT [Suspect]
     Dosage: UNK
     Route: 048
     Dates: end: 201206
  5. BEVACIZUMAB [Suspect]
     Indication: GLIOBLASTOMA MULTIFORME
     Dosage: 773 mg, qow
     Route: 042
     Dates: start: 20110201, end: 20110203
  6. BEVACIZUMAB [Suspect]
     Indication: MALIGNANT GLIOMA
     Dosage: 773 mg, qow
     Route: 042
     Dates: start: 20110210, end: 20110221
  7. TEMODAR [Suspect]
     Indication: GLIOBLASTOMA MULTIFORME
     Dosage: 100 mg, qd
     Route: 048
     Dates: start: 20110201, end: 20110203
  8. TEMODAR [Suspect]
     Indication: MALIGNANT GLIOMA
     Dosage: 100 mg, qd
     Route: 048
     Dates: start: 20110210, end: 20110225
  9. TEMODAR [Suspect]
     Dosage: 50 mg/m2, qd
     Route: 048
  10. TEMODAR [Suspect]
     Dosage: UNK
     Route: 048
     Dates: end: 201106
  11. DECADRON TABLETS [Concomitant]
     Dosage: 2 mg, bid
     Route: 048
  12. KEPPRA [Concomitant]
     Dosage: 500 mg, bid
     Route: 048
  13. KEPPRA [Concomitant]
     Dosage: 1000 mg, bid
     Route: 048
  14. ZOFRAN [Concomitant]
     Indication: NAUSEA
     Dosage: 8 mg, q8h
  15. VITAMINS (UNSPECIFIED) [Concomitant]
     Dosage: 1 TAB daily
  16. ALBUTEROL [Concomitant]
  17. DEXAMETHASONE [Concomitant]
     Dosage: 0.5 mg, qd
     Route: 048
  18. ACYCLOVIR [Concomitant]
     Dosage: 1 DF, qd
     Route: 061
  19. COLLAGENASE CLOSTRIDIUM HISTOLYTICUM [Concomitant]
     Dosage: 250 U, qd
     Route: 061
  20. ENOXAPARIN SODIUM [Concomitant]
     Dosage: 60 mg, q12h
     Route: 058
  21. HYDROCORTISONE [Concomitant]
     Dosage: 10mg, 2 tablets AM and 1 tab PM
     Route: 048
  22. HYDROCORTISONE [Concomitant]
     Dosage: 20mg AM,10mg PM
     Route: 048
  23. LOVENOX [Concomitant]
     Indication: DEEP VEIN THROMBOSIS
     Dosage: 60 mg, bid
     Route: 058
  24. ANDRODERM [Concomitant]
     Dosage: 5 mg, qd
  25. CORTEF [Concomitant]
     Dosage: 20 mg, qd
  26. CORTEF [Concomitant]
     Dosage: 20 mg AM 10 mg PM
  27. KLOR-CON [Concomitant]
     Dosage: 20 mEq, qd
  28. ULTRAM [Concomitant]
     Dosage: 50 mg, q4h
     Route: 048
  29. ASCORBIC ACID [Concomitant]
     Dosage: 500 mg, bid
     Route: 048
  30. SERTRALINE HYDROCHLORIDE [Concomitant]
     Dosage: 25 mg, QPM
  31. SODIUM CHLORIDE [Concomitant]
     Dosage: 500 ml, UNK
     Dates: start: 20110225
  32. LIDOCAINE [Concomitant]
     Dosage: PRN for mucous membrane
  33. METRONIDAZOLE [Concomitant]
     Dosage: 500 mg, tid
     Route: 048

REACTIONS (14)
  - Thrombosis [Unknown]
  - Haemoglobin decreased [Unknown]
  - Hypoxia [Unknown]
  - Hypokalaemia [Unknown]
  - Infection [Unknown]
  - Hypophosphataemia [Unknown]
  - Grand mal convulsion [Unknown]
  - Hypokalaemia [Unknown]
  - Ataxia [Recovering/Resolving]
  - Fatigue [Unknown]
  - Cerebral haemorrhage [Unknown]
  - Gait disturbance [Unknown]
  - Pneumonia [Unknown]
  - Urinary tract infection [Unknown]
